FAERS Safety Report 5520067-7 (Version None)
Quarter: 2007Q4

REPORT INFORMATION
  Report Type: 
  Country: None (occurrence: None)
  Receive Date: 20071116
  Receipt Date: 20071106
  Transmission Date: 20080405
  Serious: Yes (Hospitalization, Other)
  Sender: FDA-Public Use
  Company Number: BR-ABBOTT-07P-020-0423719-00

PATIENT
  Age: 60 Year
  Sex: Male
  Weight: 49 kg

DRUGS (4)
  1. HUMIRA [Suspect]
     Indication: RHEUMATOID ARTHRITIS
     Route: 058
     Dates: start: 20061114, end: 20071003
  2. OMEPRAZOLE [Concomitant]
     Indication: PROPHYLAXIS AGAINST GASTROINTESTINAL ULCER
  3. DIAZEPAM [Concomitant]
     Indication: SEDATION
  4. MAGISTRAL FORMULA [Concomitant]
     Indication: RHEUMATOID ARTHRITIS
     Route: 048
     Dates: start: 20050101

REACTIONS (19)
  - ABSCESS [None]
  - ANAEMIA [None]
  - CHEST X-RAY ABNORMAL [None]
  - COMA [None]
  - CONVULSION [None]
  - COUGH [None]
  - DEHYDRATION [None]
  - DIARRHOEA [None]
  - LIVER ABSCESS [None]
  - LUNG ABSCESS [None]
  - NEOPLASM MALIGNANT [None]
  - PLEURAL EFFUSION [None]
  - PNEUMONIA [None]
  - PROTEINURIA [None]
  - PYREXIA [None]
  - SPLENIC ABSCESS [None]
  - SUBCUTANEOUS ABSCESS [None]
  - URINARY TRACT INFECTION [None]
  - VOMITING [None]
